FAERS Safety Report 12920952 (Version 1)
Quarter: 2016Q4

REPORT INFORMATION
  Report Type: Spontaneous
  Country: US (occurrence: US)
  Receive Date: 20161107
  Receipt Date: 20161107
  Transmission Date: 20170207
  Serious: No
  Sender: FDA-Public Use
  Company Number: None

PATIENT
  Age: 60 Year
  Sex: Male
  Weight: 89.9 kg

DRUGS (2)
  1. ETOMIDATE. [Suspect]
     Active Substance: ETOMIDATE
     Indication: SURGERY
     Route: 042
     Dates: start: 20151219, end: 20151219
  2. ETOMIDATE. [Suspect]
     Active Substance: ETOMIDATE
     Indication: CARDIOVASCULAR DISORDER
     Route: 042
     Dates: start: 20151219, end: 20151219

REACTIONS (1)
  - Hypotension [None]

NARRATIVE: CASE EVENT DATE: 20151219
